FAERS Safety Report 19352343 (Version 2)
Quarter: 2022Q3

REPORT INFORMATION
  Report Type: Report from Study
  Country: US (occurrence: US)
  Receive Date: 20210601
  Receipt Date: 20220713
  Transmission Date: 20221027
  Serious: Yes (Death, Life-Threatening, Hospitalization, Disabling, Other)
  Sender: FDA-Public Use
  Company Number: US-INCYTE CORPORATION-2019IN004578

PATIENT

DRUGS (42)
  1. JAKAFI [Suspect]
     Active Substance: RUXOLITINIB
     Indication: Myelofibrosis
     Dosage: 10 MILLIGRAM
     Route: 048
     Dates: start: 2017
  2. JAKAFI [Suspect]
     Active Substance: RUXOLITINIB
     Dosage: 15 MILLIGRAM, BID
     Route: 048
     Dates: start: 201909
  3. POTASSIUM [Concomitant]
     Active Substance: POTASSIUM
     Indication: Hypertension
     Dosage: 99 MILLIGRAM
     Route: 065
     Dates: start: 201803
  4. POTASSIUM [Concomitant]
     Active Substance: POTASSIUM
     Dosage: 99 MILLIGRAM
     Route: 065
     Dates: start: 201803
  5. AMLODIPINE [Concomitant]
     Active Substance: AMLODIPINE BESYLATE
     Indication: Hypertension
     Dosage: 5 MILLIGRAM
     Route: 065
     Dates: start: 2017, end: 20190318
  6. LIPITOR [Concomitant]
     Active Substance: ATORVASTATIN CALCIUM
     Indication: Hypercholesterolaemia
     Dosage: 20 MILLIGRAM, QD
     Route: 065
     Dates: start: 20171024
  7. LIPITOR [Concomitant]
     Active Substance: ATORVASTATIN CALCIUM
     Dosage: 20 MILLIGRAM
     Route: 065
     Dates: start: 2017
  8. CALCIUM +D [CALCIUM;ERGOCALCIFEROL] [Concomitant]
     Indication: Prophylaxis
     Dosage: 600-500 MILLIGRAM
     Route: 065
     Dates: start: 2018
  9. CALCIUM +D [CALCIUM;ERGOCALCIFEROL] [Concomitant]
     Indication: Supplementation therapy
     Dosage: 315-200 MG QD
     Route: 048
     Dates: start: 20171024
  10. VITAMINS NOS [Concomitant]
     Active Substance: VITAMINS
     Indication: Prophylaxis
     Dosage: UNK
     Route: 048
     Dates: start: 20171024
  11. VITAMINS NOS [Concomitant]
     Active Substance: VITAMINS
     Indication: Supplementation therapy
     Dosage: UNK, MG
     Route: 065
     Dates: start: 2017
  12. IRON [Concomitant]
     Active Substance: IRON
     Indication: Prophylaxis
     Dosage: 600 MILLIGRAM
     Route: 065
     Dates: start: 2017
  13. RAMIPRIL [Concomitant]
     Active Substance: RAMIPRIL
     Indication: Hypertension
     Dosage: 2.5 MILLIGRAM
     Route: 065
     Dates: start: 2017
  14. ASPIRIN [Concomitant]
     Active Substance: ASPIRIN
     Indication: Prophylaxis
     Dosage: 81 MILLIGRAM, QD
     Route: 048
     Dates: start: 20180620
  15. ASPIRIN [Concomitant]
     Active Substance: ASPIRIN
     Indication: Supplementation therapy
  16. CARTIA XT [Concomitant]
     Active Substance: DILTIAZEM HYDROCHLORIDE
     Indication: Hypertension
     Dosage: 120 MILLIGRAM, QD
     Route: 048
     Dates: start: 20190318
  17. PROAIR HFA [Concomitant]
     Active Substance: ALBUTEROL SULFATE
     Indication: Product used for unknown indication
     Dosage: 90 MICROGRAM, 2 PUFFS AS NEEDED
     Dates: start: 20190318
  18. ALDACTONE [Concomitant]
     Active Substance: SPIRONOLACTONE
     Indication: Hypertension
     Dosage: 25 MILLIGRAM, QD
     Route: 048
     Dates: start: 20191118
  19. VITAMIN D2 [Concomitant]
     Active Substance: ERGOCALCIFEROL
     Indication: Prophylaxis
     Dosage: 50000 UNITS, 1 CAPSULE PER WEEK
     Route: 048
     Dates: start: 20190318
  20. VITAMIN D2 [Concomitant]
     Active Substance: ERGOCALCIFEROL
     Indication: Supplementation therapy
  21. FUROSEMIDE [Concomitant]
     Active Substance: FUROSEMIDE
     Indication: Hypertension
     Dosage: 40 MILLIGRAM, QD
     Route: 065
     Dates: start: 20191118
  22. METOCLOPRAMIDE [Concomitant]
     Active Substance: METOCLOPRAMIDE
     Indication: Product used for unknown indication
     Dosage: 10 MILLIGRAM
     Route: 065
     Dates: start: 20191224, end: 20191224
  23. DEXTROSE [Concomitant]
     Active Substance: DEXTROSE
     Indication: Product used for unknown indication
     Dosage: 25 GRAM, BID
     Route: 065
     Dates: start: 20191225, end: 20191225
  24. CALCIUM GLUCONATE [Concomitant]
     Active Substance: CALCIUM GLUCONATE
     Indication: Product used for unknown indication
     Dosage: 1 GRAM
     Route: 065
     Dates: start: 20191225, end: 20191225
  25. INSULIN BEEF [Concomitant]
     Active Substance: INSULIN BEEF
     Indication: Fatigue
     Dosage: 10 MILLIGRAM
     Route: 065
     Dates: start: 20191225, end: 20191225
  26. CEFEPIME [Concomitant]
     Active Substance: CEFEPIME HYDROCHLORIDE
     Indication: Infection
     Dosage: 500 MILLIGRAM
     Route: 065
     Dates: start: 20191225, end: 20191225
  27. ETOMIDATE [Concomitant]
     Active Substance: ETOMIDATE
     Indication: Endotracheal intubation
     Dosage: 20 MILLIGRAM
     Route: 065
     Dates: start: 20191225, end: 20191225
  28. ROCURONIUM [Concomitant]
     Active Substance: ROCURONIUM BROMIDE
     Indication: Product used for unknown indication
     Dosage: 100 MILLIGRAM
     Route: 065
     Dates: start: 20191225, end: 20191225
  29. SODIUM BICARBONATE [Concomitant]
     Active Substance: SODIUM BICARBONATE
     Indication: Product used for unknown indication
     Dosage: 50 MILLIEQUIVALENT
     Route: 065
     Dates: start: 20191225, end: 20191225
  30. SODIUM BICARBONATE [Concomitant]
     Active Substance: SODIUM BICARBONATE
     Dosage: 150 MILLIEQUIVALENT
     Route: 065
     Dates: start: 20191225, end: 20191225
  31. VANCOMYCIN [Concomitant]
     Active Substance: VANCOMYCIN
     Indication: Infection
     Dosage: 1 GRAM
     Route: 065
     Dates: start: 20191225, end: 20191225
  32. CALCIUM CHLORIDE [Concomitant]
     Active Substance: CALCIUM CHLORIDE
     Indication: Product used for unknown indication
     Dosage: 10 MILLILITER
     Route: 065
     Dates: start: 20191225, end: 20191225
  33. PATIROMER [Concomitant]
     Active Substance: PATIROMER
     Indication: Product used for unknown indication
     Dosage: 25.2 GRAM
     Route: 065
     Dates: start: 20191225, end: 20191225
  34. PIPERACILLIN AND TAZOBACTAM [Concomitant]
     Active Substance: PIPERACILLIN SODIUM\TAZOBACTAM SODIUM
     Indication: Infection
     Dosage: 2.25 GRAM, BID
     Route: 065
     Dates: start: 20191225, end: 20191225
  35. RASBURICASE [Concomitant]
     Active Substance: RASBURICASE
     Indication: Product used for unknown indication
     Dosage: 6 MILLIGRAM
     Route: 065
     Dates: start: 20191225, end: 20191225
  36. PANTOPRAZOLE [Concomitant]
     Active Substance: PANTOPRAZOLE
     Indication: Product used for unknown indication
     Dosage: 40 MILLIGRAM
     Route: 065
     Dates: start: 20191225, end: 20191225
  37. LORAZEPAM [Concomitant]
     Active Substance: LORAZEPAM
     Indication: Product used for unknown indication
     Dosage: 0.5 MILLILITER, BID
     Route: 065
     Dates: start: 20191225, end: 20191225
  38. MORPHINE [Concomitant]
     Active Substance: MORPHINE
     Indication: Product used for unknown indication
     Dosage: 2 MILLIGRAM
     Route: 065
     Dates: start: 20191225, end: 20191225
  39. GLYCOPYRRONIUM [Concomitant]
     Active Substance: GLYCOPYRRONIUM
     Indication: Product used for unknown indication
     Dosage: 0.2 MILLILITER
     Route: 065
     Dates: start: 20191225, end: 20191225
  40. SCOPOLAMINE [Concomitant]
     Active Substance: SCOPOLAMINE
     Indication: Nausea
     Dosage: 1 MILLIGRAM
     Route: 065
     Dates: start: 20191225, end: 20191225
  41. SCOPOLAMINE [Concomitant]
     Active Substance: SCOPOLAMINE
     Indication: Vomiting
  42. NOREPINEPHRINE [Concomitant]
     Active Substance: NOREPINEPHRINE
     Indication: Product used for unknown indication
     Dosage: 8 MILLIGRAM
     Route: 065
     Dates: start: 20191225, end: 20191225

REACTIONS (10)
  - Asthenia [Fatal]
  - Fatigue [Fatal]
  - Vomiting [Fatal]
  - Nausea [Fatal]
  - Diarrhoea [Fatal]
  - Lymphoma [Fatal]
  - Infection [Fatal]
  - Atrial fibrillation [Recovering/Resolving]
  - White blood cell count increased [Recovered/Resolved]
  - Blood uric acid increased [Recovered/Resolved]

NARRATIVE: CASE EVENT DATE: 20171102
